FAERS Safety Report 5652600-9 (Version None)
Quarter: 2008Q1

REPORT INFORMATION
  Report Type: 
  Country: None (occurrence: None)
  Receive Date: 20080131
  Receipt Date: 20071006
  Transmission Date: 20080703
  Serious: No
  Sender: FDA-Public Use
  Company Number: US200710001967

PATIENT
  Age: 60 Year
  Sex: Male

DRUGS (6)
  1. BYETTA [Suspect]
     Indication: TYPE 2 DIABETES MELLITUS
     Dosage: 5 UG, 2/D, SUBCUTANEOUS ; 10 UG, 2/D, SUBCUTANEOUS
     Route: 058
     Dates: end: 20070901
  2. BYETTA [Suspect]
     Indication: TYPE 2 DIABETES MELLITUS
     Dosage: 5 UG, 2/D, SUBCUTANEOUS ; 10 UG, 2/D, SUBCUTANEOUS
     Route: 058
     Dates: start: 20060401
  3. GLIMEPIRIDE [Concomitant]
  4. ACTOS [Concomitant]
  5. LANTUS [Concomitant]
  6. HUMALOG [Concomitant]

REACTIONS (10)
  - ABDOMINAL DISTENSION [None]
  - ASTHENIA [None]
  - ASTHMA [None]
  - BLOOD GLUCOSE FLUCTUATION [None]
  - DYSPNOEA [None]
  - FATIGUE [None]
  - FEELING COLD [None]
  - LETHARGY [None]
  - NAUSEA [None]
  - STOMACH DISCOMFORT [None]
